FAERS Safety Report 20278810 (Version 2)
Quarter: 2022Q1

REPORT INFORMATION
  Report Type: Report from Study
  Country: IT (occurrence: IT)
  Receive Date: 20220103
  Receipt Date: 20220203
  Transmission Date: 20220423
  Serious: Yes (Hospitalization)
  Sender: FDA-Public Use
  Company Number: IT-BRISTOL-MYERS SQUIBB COMPANY-BMS-2021-128108

PATIENT
  Age: 5 Year
  Sex: Female
  Weight: 24 kg

DRUGS (5)
  1. INVESTIGATIONAL PRODUCT [Suspect]
     Active Substance: INVESTIGATIONAL PRODUCT
     Indication: Medulloblastoma
     Dosage: 0.145 MILLIGRAM
     Route: 042
     Dates: start: 20211111
  2. NIVOLUMAB [Suspect]
     Active Substance: NIVOLUMAB
     Indication: Medulloblastoma
     Dosage: 108 MILLIGRAM
     Route: 042
     Dates: start: 20211111
  3. LEVETIRACETAM [Concomitant]
     Active Substance: LEVETIRACETAM
     Indication: Prophylaxis
     Dosage: 6 MILLILITER, Q12H
     Route: 048
     Dates: start: 20200623
  4. ACETAMINOPHEN [Concomitant]
     Active Substance: ACETAMINOPHEN
     Indication: Catheter site pain
     Dosage: 360 MILLIGRAM, ONCE
     Route: 048
     Dates: start: 20211110, end: 20211110
  5. OXATOMIDE [Concomitant]
     Active Substance: OXATOMIDE
     Indication: Product used for unknown indication
     Dosage: 1 DOSAGE FORM=12 UNIT NOS
     Route: 048
     Dates: start: 20211114, end: 20211114

REACTIONS (1)
  - Pyrexia [Recovered/Resolved]

NARRATIVE: CASE EVENT DATE: 20211112
